FAERS Safety Report 23299558 (Version 3)
Quarter: 2024Q1

REPORT INFORMATION
  Report Type: Report from Study
  Country: US (occurrence: US)
  Receive Date: 20231215
  Receipt Date: 20240202
  Transmission Date: 20240410
  Serious: Yes (Life-Threatening, Hospitalization, Other)
  Sender: FDA-Public Use
  Company Number: US-NOVOPROD-1149584

PATIENT
  Age: 42 Year
  Sex: Male

DRUGS (3)
  1. FIASP [Suspect]
     Active Substance: INSULIN ASPART
     Indication: Type 2 diabetes mellitus
     Dosage: 5 IU, QD
     Route: 058
     Dates: start: 2022
  2. FIASP [Suspect]
     Active Substance: INSULIN ASPART
     Dosage: 10 IU, QD
     Route: 058
     Dates: start: 2023
  3. TRESIBA [Suspect]
     Active Substance: INSULIN DEGLUDEC
     Indication: Type 2 diabetes mellitus
     Dosage: 25 IU, QD
     Route: 058
     Dates: start: 2022

REACTIONS (2)
  - Diabetic hyperglycaemic coma [Recovered/Resolved]
  - Foot amputation [Recovered/Resolved with Sequelae]

NARRATIVE: CASE EVENT DATE: 20230101
